FAERS Safety Report 20755794 (Version 1)
Quarter: 2022Q2

REPORT INFORMATION
  Report Type: Report from Study
  Country: BR (occurrence: BR)
  Receive Date: 20220427
  Receipt Date: 20220427
  Transmission Date: 20220721
  Serious: Yes (Hospitalization, Other)
  Sender: FDA-Public Use
  Company Number: BR-TAKEDA-2022TUS022469

PATIENT
  Age: 1 Year
  Sex: Male

DRUGS (3)
  1. HEMO-8R [Suspect]
     Active Substance: ANTIHEMOPHILIC FACTOR, HUMAN RECOMBINANT
     Indication: Factor VIII deficiency
     Dosage: 250 INTERNATIONAL UNIT, 2/WEEK
     Route: 042
     Dates: start: 20211123, end: 202201
  2. FEIBA NF [Suspect]
     Active Substance: ANTI-INHIBITOR COAGULANT COMPLEX
     Indication: Haemophilia A with anti factor VIII
     Dosage: 1000 INTERNATIONAL UNIT, 3/WEEK
     Route: 042
     Dates: start: 202202, end: 20220406
  3. FERROUS SULFATE [Concomitant]
     Active Substance: FERROUS SULFATE
     Indication: Anaemia

REACTIONS (5)
  - Application site swelling [Recovering/Resolving]
  - Factor VIII inhibition [Unknown]
  - Infusion site haemorrhage [Recovering/Resolving]
  - Haemoglobin decreased [Recovering/Resolving]
  - Vein disorder [Unknown]

NARRATIVE: CASE EVENT DATE: 20220101
